FAERS Safety Report 9746328 (Version 1)
Quarter: 2013Q4

REPORT INFORMATION
  Report Type: Spontaneous
  Country: US (occurrence: US)
  Receive Date: 20131211
  Receipt Date: 20131211
  Transmission Date: 20140711
  Serious: No
  Sender: FDA-Public Use
  Company Number: US-ENDO PHARMACEUTICALS INC.-PRED20130033

PATIENT
  Age: 57 Year
  Sex: Male
  Weight: 88.53 kg

DRUGS (3)
  1. PREDNISONE TABLETS 5MG [Suspect]
     Indication: RHEUMATOID ARTHRITIS
     Route: 048
     Dates: start: 20130410, end: 201304
  2. PREDNISONE TABLETS 5MG [Suspect]
     Route: 048
     Dates: start: 201304, end: 20130422
  3. IBUPROFEN [Concomitant]
     Indication: RHEUMATOID ARTHRITIS
     Route: 048

REACTIONS (1)
  - Drug ineffective [Recovered/Resolved]
